FAERS Safety Report 5429994-2 (Version None)
Quarter: 2007Q3

REPORT INFORMATION
  Report Type: 
  Country: None (occurrence: None)
  Receive Date: 20070829
  Receipt Date: 20070827
  Transmission Date: 20080115
  Serious: Yes (Death)
  Sender: FDA-Public Use
  Company Number: JP-BOEHRINGER INGELHEIM PHARMACEUTICALS, INC.-2007-BP-04927NB

PATIENT
  Sex: Male
  Weight: 65 kg

DRUGS (9)
  1. MICARDIS [Suspect]
     Indication: HYPERTENSION
     Route: 048
     Dates: start: 20060526, end: 20070110
  2. ANPLAG [Concomitant]
     Route: 048
  3. LANSOPRAZOLE [Concomitant]
     Route: 048
  4. FLAVITAN [Concomitant]
     Route: 048
  5. GASMOTIN [Concomitant]
     Route: 048
  6. MINIPRESS [Concomitant]
     Route: 048
  7. BIO-THREE [Concomitant]
     Route: 048
  8. ASPIRIN [Concomitant]
     Route: 048
  9. LASIX [Concomitant]
     Route: 048

REACTIONS (1)
  - DEATH [None]
